FAERS Safety Report 9329352 (Version 1)
Quarter: 2013Q2

REPORT INFORMATION
  Report Type: Spontaneous
  Country: US (occurrence: US)
  Receive Date: 20130604
  Receipt Date: 20130604
  Transmission Date: 20140414
  Serious: No
  Sender: FDA-Public Use
  Company Number: US-SANOFI-AVENTIS-2012SA091218

PATIENT
  Age: 48 Year
  Sex: Male
  Weight: 95.25 kg

DRUGS (12)
  1. LANTUS SOLOSTAR [Suspect]
     Indication: TYPE 2 DIABETES MELLITUS
     Dosage: DOSE:50 UNIT(S)
     Route: 058
     Dates: start: 20110524
  2. LANTUS SOLOSTAR [Suspect]
     Indication: TYPE 2 DIABETES MELLITUS
     Dosage: DOSE:55 UNIT(S)
     Route: 051
     Dates: start: 2012
  3. LANTUS SOLOSTAR [Suspect]
     Indication: TYPE 2 DIABETES MELLITUS
     Route: 051
     Dates: start: 2010
  4. SOLOSTAR [Suspect]
     Indication: TYPE 2 DIABETES MELLITUS
     Dates: start: 20110524
  5. SOLOSTAR [Suspect]
     Indication: TYPE 2 DIABETES MELLITUS
     Dates: start: 2012
  6. SOLOSTAR [Suspect]
     Indication: TYPE 2 DIABETES MELLITUS
     Dates: start: 2010
  7. METFORMIN [Concomitant]
     Indication: DIABETES MELLITUS
  8. AMARYL [Concomitant]
     Indication: DIABETES MELLITUS
     Dates: start: 20130306
  9. LISINOPRIL [Concomitant]
     Indication: HYPERTENSION
     Dosage: DOSE: 10/12 MG
  10. VERAPAMIL [Concomitant]
     Indication: HYPERTENSION
     Dates: start: 2011
  11. VERAPAMIL [Concomitant]
     Indication: HEADACHE
     Dates: start: 2011
  12. KLOR-CON [Concomitant]
     Indication: BLOOD POTASSIUM DECREASED

REACTIONS (6)
  - Nausea [Unknown]
  - Blood glucose increased [Unknown]
  - Malaise [Unknown]
  - Renal pain [Recovered/Resolved]
  - Headache [Unknown]
  - Burning sensation [Recovered/Resolved]
